FAERS Safety Report 6203697-9 (Version None)
Quarter: 2009Q2

REPORT INFORMATION
  Report Type: 
  Country: None (occurrence: None)
  Receive Date: 20090526
  Receipt Date: 20090526
  Transmission Date: 20091009
  Serious: Yes (Hospitalization)
  Sender: FDA-Public Use
  Company Number: None

PATIENT
  Age: 31 Year
  Sex: Female
  Weight: 77.1115 kg

DRUGS (1)
  1. PATADAY [Suspect]
     Indication: MULTIPLE ALLERGIES
     Dosage: 1 DROP INTO EACH EYE ONCE NIGHTLY INJ
     Dates: start: 20090424, end: 20090430

REACTIONS (1)
  - MIGRAINE [None]
